FAERS Safety Report 11318633 (Version 4)
Quarter: 2016Q3

REPORT INFORMATION
  Report Type: Report from Study
  Country: US (occurrence: US)
  Receive Date: 20150729
  Receipt Date: 20160819
  Transmission Date: 20161109
  Serious: No
  Sender: FDA-Public Use
  Company Number: PHHY2013US099699

PATIENT
  Age: 56 Year
  Sex: Female

DRUGS (6)
  1. GILENYA [Suspect]
     Active Substance: FINGOLIMOD HYDROCHLORIDE
     Indication: MULTIPLE SCLEROSIS
     Dosage: UNK, QD
     Route: 048
  2. IBUPROFEN. [Concomitant]
     Active Substance: IBUPROFEN
     Indication: BACK PAIN
     Dosage: UNK
     Route: 065
     Dates: start: 20130830
  3. VERSED [Concomitant]
     Active Substance: MIDAZOLAM HYDROCHLORIDE
     Indication: OESOPHAGOGASTRODUODENOSCOPY
     Dosage: UNK
     Route: 065
     Dates: start: 20130420, end: 20130420
  4. PROTINEX [Concomitant]
     Indication: ULCER
     Dosage: UNK
     Route: 065
     Dates: start: 20130420, end: 20130506
  5. FENTANYL. [Concomitant]
     Active Substance: FENTANYL
     Indication: OESOPHAGOGASTRODUODENOSCOPY
     Dosage: UNK
     Route: 065
     Dates: start: 20130420, end: 20130420
  6. IBUPROFEN. [Concomitant]
     Active Substance: IBUPROFEN
     Indication: PAIN

REACTIONS (3)
  - Lymphocyte count decreased [Unknown]
  - Bradycardia [Recovered/Resolved]
  - White blood cell count decreased [Unknown]

NARRATIVE: CASE EVENT DATE: 20120802
